FAERS Safety Report 7394245-9 (Version None)
Quarter: 2011Q2

REPORT INFORMATION
  Report Type: 
  Country: None (occurrence: None)
  Receive Date: 20110405
  Receipt Date: 20110325
  Transmission Date: 20111010
  Serious: Yes (Hospitalization)
  Sender: FDA-Public Use
  Company Number: AT-TEVA-265615ISR

PATIENT
  Sex: Male

DRUGS (8)
  1. DEXAMETHASONE [Suspect]
     Indication: MULTIPLE MYELOMA
     Dates: start: 20101201
  2. LEVOTHYROXINE SODIUM [Concomitant]
     Indication: HYPOTHYROIDISM
     Route: 048
  3. LENALIDOMIDE [Suspect]
     Route: 048
     Dates: start: 20101229, end: 20110111
  4. LENALIDOMIDE [Suspect]
     Indication: MULTIPLE MYELOMA
     Route: 048
     Dates: start: 20101201, end: 20100101
  5. LEKOVIT CA [Concomitant]
     Indication: PROPHYLAXIS
  6. ASPIRIN [Concomitant]
     Indication: PROPHYLAXIS
     Route: 048
     Dates: start: 20110114
  7. DEXAMETHASONE [Suspect]
     Dates: start: 20101229
  8. HEPARIN SODIUM [Concomitant]
     Indication: THROMBOSIS PROPHYLAXIS
     Route: 058
     Dates: start: 20101101

REACTIONS (3)
  - APHASIA [None]
  - PYREXIA [None]
  - TRANSIENT ISCHAEMIC ATTACK [None]
